FAERS Safety Report 11468561 (Version 1)
Quarter: 2015Q3

REPORT INFORMATION
  Report Type: Spontaneous
  Country: GB (occurrence: GB)
  Receive Date: 20150908
  Receipt Date: 20150908
  Transmission Date: 20151125
  Serious: Yes (Other)
  Sender: FDA-Public Use
  Company Number: GB-GLAXOSMITHKLINE-GB2015GSK127189

PATIENT
  Sex: Male

DRUGS (4)
  1. SERETIDE [Suspect]
     Active Substance: FLUTICASONE FUROATE\SALMETEROL XINAFOATE
     Indication: ASTHMA
     Dosage: UNK
  2. VENTOLIN [Suspect]
     Active Substance: ALBUTEROL SULFATE
     Indication: ASTHMA
     Dosage: UNK
  3. FOSTAIR [Suspect]
     Active Substance: BECLOMETHASONE\FORMOTEROL
     Indication: ASTHMA
     Dosage: UNK
  4. SPIRIVA RESPIMAT [Suspect]
     Active Substance: TIOTROPIUM BROMIDE
     Indication: ASTHMA
     Dosage: UNK

REACTIONS (5)
  - Dyspnoea [Unknown]
  - Fear [Unknown]
  - Drug ineffective [Unknown]
  - Suicidal ideation [Unknown]
  - Gastrointestinal motility disorder [Unknown]
